FAERS Safety Report 25255092 (Version 1)
Quarter: 2025Q2

REPORT INFORMATION
  Report Type: Spontaneous
  Country: PL (occurrence: PL)
  Receive Date: 20250430
  Receipt Date: 20250430
  Transmission Date: 20250717
  Serious: Yes (Life-Threatening, Other)
  Sender: AUROBINDO
  Company Number: PL-URPL-DML-MLP.4401.1.5655.2021

PATIENT
  Age: 26 Year
  Sex: Female
  Weight: 80 kg

DRUGS (1)
  1. ACETAMINOPHEN [Suspect]
     Active Substance: ACETAMINOPHEN
     Indication: Product used for unknown indication
     Route: 048
     Dates: start: 20210404, end: 20210404

REACTIONS (5)
  - Suicide attempt [Unknown]
  - Abdominal pain [Recovering/Resolving]
  - Nausea [Recovering/Resolving]
  - Depressed mood [Recovering/Resolving]
  - Toxicity to various agents [Recovering/Resolving]

NARRATIVE: CASE EVENT DATE: 20210404
